FAERS Safety Report 9033545 (Version 1)
Quarter: 2013Q1

REPORT INFORMATION
  Report Type: Spontaneous
  Country: US (occurrence: US)
  Receive Date: 20130128
  Receipt Date: 20130128
  Transmission Date: 20140127
  Serious: Yes (Other)
  Sender: FDA-Public Use
  Company Number: US-MYLANLABS-2012S1022554

PATIENT
  Sex: Female

DRUGS (2)
  1. BUPROPION HYDROCHLORIDE EXTENDED RELEASE (XL) [Suspect]
  2. BUPROPION HYDROCHLORIDE EXTENDED RELEASE (XL) [Suspect]

REACTIONS (2)
  - Drug effect decreased [Unknown]
  - Convulsion [Not Recovered/Not Resolved]
